FAERS Safety Report 25787915 (Version 3)
Quarter: 2025Q3

REPORT INFORMATION
  Report Type: Spontaneous
  Country: CH (occurrence: CH)
  Receive Date: 20250910
  Receipt Date: 20250927
  Transmission Date: 20251020
  Serious: Yes (Death, Other)
  Sender: SANOFI AVENTIS
  Company Number: CH-SA-2025SA269199

PATIENT
  Age: 80 Year
  Sex: Female

DRUGS (14)
  1. DUPIXENT [Suspect]
     Active Substance: DUPILUMAB
     Indication: Pemphigoid
     Dates: start: 20250527, end: 20250527
  2. DUPIXENT [Suspect]
     Active Substance: DUPILUMAB
     Dosage: 300 MG, QOW
     Dates: start: 202506, end: 20250711
  3. Eltroxin lf [Concomitant]
     Indication: Hypothyroidism
  4. ORABASE [Concomitant]
     Active Substance: CARBOXYMETHYLCELLULOSE SODIUM\GELATIN\PECTIN
     Indication: Oropharyngeal pain
  5. ORABASE [Concomitant]
     Active Substance: CARBOXYMETHYLCELLULOSE SODIUM\GELATIN\PECTIN
     Indication: Oral pain
  6. KENACORT [Concomitant]
     Active Substance: TRIAMCINOLONE
     Indication: Oropharyngeal pain
  7. KENACORT [Concomitant]
     Active Substance: TRIAMCINOLONE
     Indication: Oral pain
  8. CLOBETASOL [Concomitant]
     Active Substance: CLOBETASOL
     Indication: Pemphigoid
  9. BETAMETHASONE VALERATE\FUSIDIC ACID [Concomitant]
     Active Substance: BETAMETHASONE VALERATE\FUSIDIC ACID
     Indication: Pemphigoid
  10. DIFLUCAN [Concomitant]
     Active Substance: FLUCONAZOLE
     Indication: Oral candidiasis
     Dosage: 400 MG, QOW
     Dates: start: 20250710
  11. MEMANTINE HYDROCHLORIDE [Concomitant]
     Active Substance: MEMANTINE HYDROCHLORIDE
     Indication: Dementia
  12. OCTENIDINE\PHENOXYETHANOL [Concomitant]
     Active Substance: OCTENIDINE\PHENOXYETHANOL
     Indication: Pemphigoid
  13. Bucco-tantum [Concomitant]
     Indication: Oral pain
  14. Bucco-tantum [Concomitant]
     Indication: Oropharyngeal pain

REACTIONS (3)
  - Sepsis [Fatal]
  - Pneumonia aspiration [Fatal]
  - Off label use [Unknown]

NARRATIVE: CASE EVENT DATE: 20250527
